FAERS Safety Report 7897566-6 (Version None)
Quarter: 2011Q4

REPORT INFORMATION
  Report Type: 
  Country: None (occurrence: None)
  Receive Date: 20111107
  Receipt Date: 20111031
  Transmission Date: 20120403
  Serious: Yes (Death, Other)
  Sender: FDA-Public Use
  Company Number: DE-ELI_LILLY_AND_COMPANY-DE201111000591

PATIENT
  Age: 16 Year
  Sex: Male

DRUGS (3)
  1. GEMCITABINE HYDROCHLORIDE [Suspect]
     Indication: NON-SMALL CELL LUNG CANCER
     Dosage: 1000 MG/M2/D, DAY 1 AND 8 EVERY 3 WEEK CYCLE
  2. PAMIDRONATE DISODIUM [Concomitant]
     Dosage: 30 MG, EVERY 4 WEEKS
  3. CISPLATIN [Concomitant]
     Dosage: 70 MG/M2/D, DAY 1 EVERY 3 WEEK CYCLE

REACTIONS (8)
  - DEATH [None]
  - NEOPLASM PROGRESSION [None]
  - CACHEXIA [None]
  - INFECTION [None]
  - PLEURAL EFFUSION [None]
  - PANCYTOPENIA [None]
  - DIABETES INSIPIDUS [None]
  - VOMITING [None]
